FAERS Safety Report 19019327 (Version 1)
Quarter: 2021Q1

REPORT INFORMATION
  Report Type: Spontaneous
  Country: CN (occurrence: CN)
  Receive Date: 20210316
  Receipt Date: 20210316
  Transmission Date: 20210420
  Serious: Yes (Life-Threatening, Hospitalization, Other)
  Sender: FDA-Public Use
  Company Number: CN-PFIZER INC-2021247087

PATIENT
  Age: 8 Month
  Sex: Male
  Weight: 9 kg

DRUGS (1)
  1. ZITHROMAX [Suspect]
     Active Substance: AZITHROMYCIN DIHYDRATE
     Indication: BRONCHITIS
     Dosage: 100.000 MG, 1X/DAY
     Route: 041
     Dates: start: 20210210, end: 20210210

REACTIONS (5)
  - Heart rate decreased [Unknown]
  - Encephalopathy [Unknown]
  - Cyanosis central [Unknown]
  - Encephalitis [Unknown]
  - Pallor [Unknown]

NARRATIVE: CASE EVENT DATE: 20210210
